FAERS Safety Report 24258583 (Version 2)
Quarter: 2025Q1

REPORT INFORMATION
  Report Type: Spontaneous
  Country: JP (occurrence: JP)
  Receive Date: 20240828
  Receipt Date: 20250214
  Transmission Date: 20250409
  Serious: Yes (Other)
  Sender: JAZZ
  Company Number: JP-JAZZ PHARMACEUTICALS-2024-JP-013548

PATIENT
  Age: 7 Decade
  Sex: Male

DRUGS (1)
  1. VYXEOS [Suspect]
     Active Substance: CYTARABINE\DAUNORUBICIN
     Indication: Acute myeloid leukaemia
     Route: 042
     Dates: start: 20240705, end: 2024

REACTIONS (1)
  - Acute myeloid leukaemia recurrent [Unknown]

NARRATIVE: CASE EVENT DATE: 20240101
